FAERS Safety Report 9563007 (Version 1)
Quarter: 2013Q3

REPORT INFORMATION
  Report Type: Spontaneous
  Country: TW (occurrence: TW)
  Receive Date: 20130927
  Receipt Date: 20130927
  Transmission Date: 20140515
  Serious: Yes (Other)
  Sender: FDA-Public Use
  Company Number: PHHY2013TW105394

PATIENT
  Age: 17 Year
  Sex: Female

DRUGS (4)
  1. QUETIAPINE [Suspect]
     Indication: PSYCHOTIC DISORDER
     Dosage: 600 MG, PER DAY
  2. QUETIAPINE [Suspect]
     Dosage: 800 MG, PER DAY
  3. QUETIAPINE [Suspect]
     Dosage: 400-600 MG PER DAY
  4. ESTAZOLAM [Concomitant]
     Dosage: 1-2 MG/DAY

REACTIONS (5)
  - Kleptomania [Recovered/Resolved]
  - Psychotic disorder [Recovered/Resolved]
  - Impulsive behaviour [Unknown]
  - Speech disorder [Unknown]
  - Delusion of reference [Unknown]
